FAERS Safety Report 4821009-X (Version None)
Quarter: 2005Q4

REPORT INFORMATION
  Report Type: 
  Country: None (occurrence: None)
  Receive Date: 20051103
  Receipt Date: 20051019
  Transmission Date: 20060501
  Serious: Yes (Death)
  Sender: FDA-Public Use
  Company Number: L05-USA-03935-42

PATIENT
  Age: 25 Year

DRUGS (3)
  1. ESCITALOPRAM OXALATE [Suspect]
  2. AMITRIPTYLINE HCL [Suspect]
  3. ALPRAZOLAM [Suspect]

REACTIONS (3)
  - CARDIAC ARREST [None]
  - MULTIPLE DRUG OVERDOSE [None]
  - RESPIRATORY ARREST [None]
